FAERS Safety Report 5464905-5 (Version None)
Quarter: 2007Q3

REPORT INFORMATION
  Report Type: 
  Country: None (occurrence: None)
  Receive Date: 20070921
  Receipt Date: 20070911
  Transmission Date: 20080115
  Serious: Yes (Other)
  Sender: FDA-Public Use
  Company Number: US-PFIZER INC-2007076458

PATIENT
  Sex: Male
  Weight: 68.2 kg

DRUGS (4)
  1. LYRICA [Suspect]
     Indication: HYPOAESTHESIA
  2. VALIUM [Concomitant]
  3. LEXAPRO [Concomitant]
  4. ASPIRIN [Concomitant]

REACTIONS (1)
  - PROSTATIC SPECIFIC ANTIGEN INCREASED [None]
